FAERS Safety Report 6487966-3 (Version None)
Quarter: 2009Q4

REPORT INFORMATION
  Report Type: 
  Country: None (occurrence: None)
  Receive Date: 20091209
  Receipt Date: 20091209
  Transmission Date: 20100525
  Serious: Yes (Hospitalization)
  Sender: FDA-Public Use
  Company Number: None

PATIENT
  Age: 48 Year
  Sex: Male

DRUGS (5)
  1. VIREAD [Suspect]
     Indication: HEPATITIS B
     Dosage: 300MG DAILY PO
     Route: 048
  2. XANAX [Concomitant]
  3. LEXAPRO [Concomitant]
  4. LAMICTAL [Concomitant]
  5. INDERAL [Concomitant]

REACTIONS (5)
  - HEPATITIS B [None]
  - INFECTION [None]
  - LEUKOPENIA [None]
  - PNEUMONIA [None]
  - THROMBOCYTOPENIA [None]
